FAERS Safety Report 23653930 (Version 1)
Quarter: 2024Q1

REPORT INFORMATION
  Report Type: Spontaneous
  Country: US (occurrence: None)
  Receive Date: 20240319
  Receipt Date: 20240319
  Transmission Date: 20240410
  Serious: Yes (Other)
  Sender: FDA-Public Use
  Company Number: None

PATIENT
  Age: 24 Year
  Sex: Female
  Weight: 84.6 kg

DRUGS (3)
  1. IRON DEXTRAN [Suspect]
     Active Substance: IRON DEXTRAN
     Indication: Anaemia of pregnancy
     Dosage: 1000 MG  ONCE INTRAVENOUS DRIP?
     Route: 041
  2. 0.9%  NaCl infusion [Concomitant]
     Dates: start: 20240313, end: 20240313
  3. VITAMINS [Concomitant]
     Active Substance: VITAMINS

REACTIONS (5)
  - Infusion related reaction [None]
  - Nausea [None]
  - Vomiting [None]
  - Hypotension [None]
  - Pain [None]

NARRATIVE: CASE EVENT DATE: 20240313
